FAERS Safety Report 17575809 (Version 1)
Quarter: 2020Q1

REPORT INFORMATION
  Report Type: Spontaneous
  Country: CA (occurrence: CA)
  Receive Date: 20200324
  Receipt Date: 20200324
  Transmission Date: 20200409
  Serious: Yes (Other)
  Sender: FDA-Public Use
  Company Number: CA-PFIZER INC-2020120835

PATIENT
  Sex: Female

DRUGS (18)
  1. CYCLOBENZAPRINE. [Concomitant]
     Active Substance: CYCLOBENZAPRINE
     Dosage: 10 MG, 1X/DAY (1 EVERY 1 DAY)
     Route: 065
  2. ROSUVASTATIN CALCIUM. [Concomitant]
     Active Substance: ROSUVASTATIN CALCIUM
     Dosage: 5 MG, 1X/DAY (1 EVERY 1 DAY)
     Route: 065
  3. SYNTHROID [Concomitant]
     Active Substance: LEVOTHYROXINE SODIUM
     Dosage: 15 UG, 1X/DAY (1 EVERY 1 DAY)
     Route: 065
  4. LEFLUNOMIDE. [Suspect]
     Active Substance: LEFLUNOMIDE
     Dosage: 20 MG, 1X/DAY (1 EVERY 1 DAYS)
     Route: 065
  5. LYRICA [Concomitant]
     Active Substance: PREGABALIN
     Dosage: 150 MG, 3X/DAY (3 EVERY 1 DAY)
     Route: 065
  6. METHOTREXATE SODIUM. [Suspect]
     Active Substance: METHOTREXATE SODIUM
     Dosage: UNK
     Route: 065
  7. ENBREL [Suspect]
     Active Substance: ETANERCEPT
     Dosage: UNK
     Route: 065
  8. SULFASALAZINE. [Suspect]
     Active Substance: SULFASALAZINE
     Dosage: UNK
     Route: 065
  9. XELJANZ [Suspect]
     Active Substance: TOFACITINIB CITRATE
     Dosage: 5 MG, 2X/DAY (2 EVERY 1 DAY)
     Route: 048
  10. CIPRALEX [Concomitant]
     Active Substance: ESCITALOPRAM OXALATE
     Dosage: 20 MG, 1X/DAY (1 EVERY 1 DAY)
     Route: 065
  11. LYRICA [Concomitant]
     Active Substance: PREGABALIN
     Dosage: 150 MG, 2X/DAY (2 EVERY 1 DAY)
     Route: 065
  12. NIFEDIPINE. [Concomitant]
     Active Substance: NIFEDIPINE
     Dosage: 30 MG, 1X/DAY (1 EVERY 1 DAY)
     Route: 065
  13. HUMIRA [Suspect]
     Active Substance: ADALIMUMAB
     Indication: RHEUMATOID ARTHRITIS
     Dosage: UNK
     Route: 058
  14. ACTEMRA [Suspect]
     Active Substance: TOCILIZUMAB
     Dosage: UNK
     Route: 065
  15. CLONAZEPAM. [Concomitant]
     Active Substance: CLONAZEPAM
     Dosage: 5 MG, 1X/DAY (1 EVERY 1 DAY)
     Route: 065
  16. ZOMIG [Concomitant]
     Active Substance: ZOLMITRIPTAN
     Dosage: 25 MG, UNK
     Route: 065
  17. CLONAZEPAM. [Concomitant]
     Active Substance: CLONAZEPAM
     Dosage: 0.5 MG, 2X/DAY (2 EVERY 1 DAY)
     Route: 065
  18. RISEDRONATE [Concomitant]
     Active Substance: RISEDRONATE SODIUM
     Dosage: 1 DF, WEEKLY (1 EVERY 1 WEEK)
     Route: 065

REACTIONS (31)
  - Dry mouth [Unknown]
  - Insomnia [Unknown]
  - Osteoarthritis [Unknown]
  - Temperature intolerance [Unknown]
  - Antibody test positive [Unknown]
  - Dizziness [Unknown]
  - Dyspnoea exertional [Unknown]
  - Myalgia [Unknown]
  - Pain [Unknown]
  - Joint range of motion decreased [Unknown]
  - Oral herpes [Unknown]
  - Joint swelling [Unknown]
  - Loss of personal independence in daily activities [Unknown]
  - Vertigo [Unknown]
  - Visual impairment [Unknown]
  - Constipation [Unknown]
  - Fall [Unknown]
  - Red blood cell sedimentation rate increased [Unknown]
  - Tenderness [Unknown]
  - Back pain [Unknown]
  - Drug ineffective [Unknown]
  - Musculoskeletal stiffness [Unknown]
  - Fatigue [Unknown]
  - Hypotension [Unknown]
  - Pyrexia [Unknown]
  - Tuberculosis [Unknown]
  - Abdominal discomfort [Unknown]
  - Arthralgia [Unknown]
  - Drug intolerance [Unknown]
  - Infrequent bowel movements [Unknown]
  - Peripheral swelling [Unknown]
